FAERS Safety Report 19367000 (Version 1)
Quarter: 2021Q2

REPORT INFORMATION
  Report Type: Report from Study
  Country: US (occurrence: US)
  Receive Date: 20210602
  Receipt Date: 20210602
  Transmission Date: 20210717
  Serious: Yes (Other)
  Sender: FDA-Public Use
  Company Number: US-MYLANLABS-2021M1031895

PATIENT
  Age: 74 Year
  Sex: Female

DRUGS (2)
  1. MYCOPHENOLATE MOFETIL. [Suspect]
     Active Substance: MYCOPHENOLATE MOFETIL
     Indication: LICHEN PLANUS
     Dosage: 1000 MILLIGRAM, QD MAXIMUM DOSE
     Route: 065
  2. CLOBETASOL [Concomitant]
     Active Substance: CLOBETASOL
     Indication: LICHEN PLANUS
     Route: 065

REACTIONS (3)
  - Drug ineffective for unapproved indication [Unknown]
  - Tremor [Unknown]
  - Off label use [Unknown]
